FAERS Safety Report 4482391-9 (Version None)
Quarter: 2004Q4

REPORT INFORMATION
  Report Type: 
  Country: None (occurrence: None)
  Receive Date: 20041022
  Receipt Date: 20040226
  Transmission Date: 20050328
  Serious: No
  Sender: FDA-Public Use
  Company Number: US-BRISTOL-MYERS SQUIBB COMPANY-12519021

PATIENT

DRUGS (1)
  1. BUSPAR [Suspect]

REACTIONS (2)
  - HAEMATOCHEZIA [None]
  - NAUSEA [None]
